FAERS Safety Report 4610716-X (Version None)
Quarter: 2005Q2

REPORT INFORMATION
  Report Type: 
  Country: None (occurrence: None)
  Receive Date: 20050228
  Receipt Date: 20040526
  Transmission Date: 20051028
  Serious: No
  Sender: FDA-Public Use
  Company Number: 206793

PATIENT
  Age: 13 Year
  Sex: Female
  Weight: 52.3 kg

DRUGS (6)
  1. NUTROPIN AQ [Suspect]
     Indication: GROWTH HORMONE DEFICIENCY
     Dosage: 2.6MG, 5/WEEK, SUBCUTANEOUS
     Route: 058
     Dates: start: 20030612
  2. CLARINEX [Concomitant]
  3. COQ-10 (UBIDECARENONE) [Concomitant]
  4. PREVACID [Concomitant]
  5. PROZAC [Concomitant]
  6. VITAMIN E [Concomitant]

REACTIONS (1)
  - SCOLIOSIS [None]
